FAERS Safety Report 6628633-2 (Version None)
Quarter: 2010Q1

REPORT INFORMATION
  Report Type: 
  Country: None (occurrence: None)
  Receive Date: 20100311
  Receipt Date: 20100226
  Transmission Date: 20100710
  Serious: No
  Sender: FDA-Public Use
  Company Number: US-B.I. PHARMACEUTICALS,INC./RIDGEFIELD-2010-BP-02350BP

PATIENT
  Age: 87 Year
  Sex: Female

DRUGS (2)
  1. AGGRENOX [Suspect]
     Indication: EYE DISORDER
     Route: 048
     Dates: start: 20100223
  2. DIOVAN [Concomitant]
     Indication: HYPERTENSION

REACTIONS (2)
  - ABDOMINAL PAIN [None]
  - HEADACHE [None]
